FAERS Safety Report 7379976-9 (Version None)
Quarter: 2011Q1

REPORT INFORMATION
  Report Type: 
  Country: None (occurrence: None)
  Receive Date: 20110329
  Receipt Date: 20110324
  Transmission Date: 20110831
  Serious: Yes (Death)
  Sender: FDA-Public Use
  Company Number: PHHY2011PE24491

PATIENT
  Sex: Female

DRUGS (2)
  1. EXELON [Suspect]
     Indication: DEMENTIA ALZHEIMER'S TYPE
     Dosage: 18 MG, UNK
     Route: 062
  2. DIOVAN [Concomitant]
     Indication: HYPERTENSION
     Dosage: 160 MG, UNK

REACTIONS (1)
  - DEATH [None]
